FAERS Safety Report 7479600-0 (Version None)
Quarter: 2011Q2

REPORT INFORMATION
  Report Type: 
  Country: None (occurrence: None)
  Receive Date: 20110513
  Receipt Date: 20101209
  Transmission Date: 20111010
  Serious: Yes (Hospitalization)
  Sender: FDA-Public Use
  Company Number: US-BAYER-201023236NA

PATIENT
  Age: 18 Year
  Sex: Female
  Weight: 74.376 kg

DRUGS (8)
  1. DROSPIRENONE AND ETHINYL ESTRADIOL [Suspect]
     Indication: MENORRHAGIA
  2. YAZ [Suspect]
     Indication: ACNE
  3. YAZ [Suspect]
     Indication: MENSTRUAL CYCLE MANAGEMENT
     Route: 048
  4. YASMIN [Suspect]
     Indication: MENORRHAGIA
  5. DROSPIRENONE AND ETHINYL ESTRADIOL [Suspect]
     Indication: MENSTRUAL CYCLE MANAGEMENT
     Route: 048
  6. ACCUTANE [Concomitant]
     Indication: PRODUCT USED FOR UNKNOWN INDICATION
  7. YASMIN [Suspect]
     Indication: MENSTRUAL CYCLE MANAGEMENT
     Route: 048
  8. YAZ [Suspect]
     Indication: MENORRHAGIA

REACTIONS (5)
  - CHOLECYSTITIS CHRONIC [None]
  - INJURY [None]
  - CHOLECYSTECTOMY [None]
  - CHOLELITHIASIS [None]
  - PAIN [None]
